FAERS Safety Report 9675097 (Version 1)
Quarter: 2013Q4

REPORT INFORMATION
  Report Type: Spontaneous
  Country: US (occurrence: None)
  Receive Date: 20131106
  Receipt Date: 20131106
  Transmission Date: 20140711
  Serious: No
  Sender: FDA-Public Use
  Company Number: None

PATIENT
  Age: 58 None
  Sex: Female
  Weight: 74.84 kg

DRUGS (8)
  1. SIMVASTATIN [Suspect]
  2. LEVOTHVROXIN [Suspect]
  3. IRBESARTAN [Suspect]
  4. ESCITALOPRAM [Suspect]
  5. NOVOLOG [Suspect]
  6. MULTIVITAMIN [Concomitant]
  7. CALCIUM [Concomitant]
  8. ZYRTEC [Concomitant]

REACTIONS (3)
  - Blood glucose increased [None]
  - Drug ineffective [None]
  - Product substitution issue [None]
